FAERS Safety Report 9352386 (Version 1)
Quarter: 2013Q2

REPORT INFORMATION
  Report Type: Spontaneous
  Country: DE (occurrence: DE)
  Receive Date: 20130617
  Receipt Date: 20130617
  Transmission Date: 20140414
  Serious: Yes (Hospitalization, Other)
  Sender: FDA-Public Use
  Company Number: DE-ELI_LILLY_AND_COMPANY-DE201306002021

PATIENT
  Sex: Male

DRUGS (3)
  1. FORSTEO [Suspect]
     Indication: OSTEOPOROSIS
     Dosage: UNK, QD
     Route: 058
     Dates: start: 20110926
  2. AMLODIPINE [Concomitant]
     Dosage: UNK, QD
  3. METOSUCCINAT [Concomitant]
     Indication: BLOOD PRESSURE

REACTIONS (2)
  - Upper limb fracture [Not Recovered/Not Resolved]
  - Bone marrow tumour cell infiltration [Not Recovered/Not Resolved]
